FAERS Safety Report 19847557 (Version 1)
Quarter: 2021Q3

REPORT INFORMATION
  Report Type: Spontaneous
  Country: US (occurrence: US)
  Receive Date: 20210917
  Receipt Date: 20210917
  Transmission Date: 20211014
  Serious: Yes (Other)
  Sender: FDA-Public Use
  Company Number: US-AMGEN-USASP2021140971

PATIENT
  Age: 73 Year
  Sex: Female

DRUGS (1)
  1. PROLIA [Suspect]
     Active Substance: DENOSUMAB
     Indication: OSTEOPOROSIS
     Dosage: UNK
     Route: 065
     Dates: start: 20210827

REACTIONS (8)
  - Mobility decreased [Recovered/Resolved]
  - Feeling abnormal [Unknown]
  - Back pain [Recovered/Resolved]
  - Skin erosion [Unknown]
  - Dehydration [Unknown]
  - Stomatitis [Unknown]
  - Headache [Unknown]
  - Aortic stenosis [Unknown]

NARRATIVE: CASE EVENT DATE: 202108
